FAERS Safety Report 4309083-0 (Version None)
Quarter: 2004Q1

REPORT INFORMATION
  Report Type: 
  Country: None (occurrence: None)
  Receive Date: 20040301
  Receipt Date: 20031112
  Transmission Date: 20041129
  Serious: Yes (Hospitalization)
  Sender: FDA-Public Use
  Company Number: F02200300121

PATIENT
  Age: 67 Year
  Sex: Male

DRUGS (2)
  1. XATRAL - (ALFUZOSIN) - TABLET PR - 10 MG [Suspect]
     Indication: BENIGN PROSTATIC HYPERPLASIA
     Dosage: 10 MG OD ORAL
     Route: 048
     Dates: start: 20010219
  2. SERETIDE [Concomitant]

REACTIONS (2)
  - LYMPHADENOPATHY MEDIASTINAL [None]
  - SMALL CELL LUNG CANCER METASTATIC [None]
